FAERS Safety Report 16353249 (Version 1)
Quarter: 2019Q2

REPORT INFORMATION
  Report Type: Spontaneous
  Country: US (occurrence: US)
  Receive Date: 20190524
  Receipt Date: 20190524
  Transmission Date: 20190711
  Serious: Yes (Other)
  Sender: FDA-Public Use
  Company Number: US-HIKMA PHARMACEUTICALS USA INC.-US-H14001-19-03412

PATIENT
  Age: 47 Year
  Sex: Male

DRUGS (3)
  1. CYTARABINE. [Suspect]
     Active Substance: CYTARABINE
     Indication: MYELOID LEUKAEMIA
     Route: 065
  2. ETOPOSIDE. [Suspect]
     Active Substance: ETOPOSIDE
     Indication: MYELOID LEUKAEMIA
     Route: 065
  3. IDARUBICIN [Suspect]
     Active Substance: IDARUBICIN
     Indication: MYELOID LEUKAEMIA
     Route: 065

REACTIONS (8)
  - Pericardial effusion [Unknown]
  - Cardiotoxicity [Unknown]
  - Cardiac arrest [Recovered/Resolved]
  - Thrombocytopenia [Recovered/Resolved]
  - Ejection fraction decreased [Unknown]
  - Myocarditis [Unknown]
  - Ventricular fibrillation [Unknown]
  - Aplasia [Recovered/Resolved]
